FAERS Safety Report 5272522-5 (Version None)
Quarter: 2007Q1

REPORT INFORMATION
  Report Type: 
  Country: None (occurrence: None)
  Receive Date: 20070322
  Receipt Date: 20060913
  Transmission Date: 20070707
  Serious: No
  Sender: FDA-Public Use
  Company Number: US-BRISTOL-MYERS SQUIBB COMPANY-13508429

PATIENT
  Age: 24 Year
  Sex: Female
  Weight: 47 kg

DRUGS (6)
  1. KENALOG [Suspect]
     Indication: ASTHMA
     Route: 030
     Dates: start: 20060101
  2. KENALOG [Suspect]
     Indication: BRONCHOSPASM
     Route: 030
     Dates: start: 20060101
  3. ALBUTEROL [Concomitant]
     Route: 055
  4. CLARINEX [Concomitant]
  5. NASONEX [Concomitant]
  6. LAMICTAL [Concomitant]

REACTIONS (4)
  - ATROPHY [None]
  - CONTUSION [None]
  - INJECTION SITE REACTION [None]
  - SKIN DISCOLOURATION [None]
